FAERS Safety Report 5816421-6 (Version None)
Quarter: 2008Q3

REPORT INFORMATION
  Report Type: 
  Country: None (occurrence: None)
  Receive Date: 20080721
  Receipt Date: 20080407
  Transmission Date: 20090109
  Serious: No
  Sender: FDA-Public Use
  Company Number: US-BAUSCH-2008BL001532

PATIENT
  Age: 69 Year
  Sex: Female

DRUGS (4)
  1. OPCON-A [Suspect]
     Indication: EYE PRURITUS
     Route: 047
     Dates: start: 20080331, end: 20080403
  2. MULTI-VITAMINS [Concomitant]
     Indication: VITAMIN SUPPLEMENTATION
  3. OMEGA-3 [Concomitant]
     Indication: VITAMIN SUPPLEMENTATION
  4. COQ10 /USA/ [Concomitant]
     Indication: VITAMIN SUPPLEMENTATION

REACTIONS (4)
  - DRUG INEFFECTIVE [None]
  - DRY SKIN [None]
  - ERYTHEMA [None]
  - SKIN BURNING SENSATION [None]
